FAERS Safety Report 8579925-1 (Version None)
Quarter: 2012Q3

REPORT INFORMATION
  Report Type: 
  Country: None (occurrence: None)
  Receive Date: 20120808
  Receipt Date: 20120803
  Transmission Date: 20120928
  Serious: Yes (Hospitalization, Other)
  Sender: FDA-Public Use
  Company Number: ES-ROXANE LABORATORIES, INC.-2012-RO-01639RO

PATIENT
  Age: 59 Year
  Sex: Male

DRUGS (6)
  1. VORICONAZOLE [Suspect]
     Indication: PROPHYLAXIS
     Dosage: 400 MG
     Route: 048
  2. COTRIM [Suspect]
  3. LEVOFLOXACIN [Suspect]
     Indication: PNEUMONIA
     Dosage: 500 MG
     Route: 048
  4. ACYCLOVIR [Suspect]
     Dosage: 1600 MG
  5. PREDNISONE TAB [Suspect]
  6. CYCLOSPORINE [Suspect]

REACTIONS (2)
  - FUNGAEMIA [None]
  - PNEUMONIA [None]
